FAERS Safety Report 15210482 (Version 1)
Quarter: 2018Q3

REPORT INFORMATION
  Report Type: Spontaneous
  Country: US (occurrence: US)
  Receive Date: 20180629
  Receipt Date: 20180629
  Transmission Date: 20181010
  Serious: Yes (Other)
  Sender: FDA-Public Use
  Company Number: None

PATIENT
  Age: 66 Year
  Sex: Male
  Weight: 99.79 kg

DRUGS (4)
  1. TESTOSTERONE CYPIONATE. [Concomitant]
     Active Substance: TESTOSTERONE CYPIONATE
  2. NAPROXEN. [Concomitant]
     Active Substance: NAPROXEN
  3. PRALUENT [Suspect]
     Active Substance: ALIROCUMAB
     Indication: HYPERCHOLESTEROLAEMIA
     Dosage: ?          QUANTITY:75 MG MILLIGRAM(S);?
     Dates: end: 20180323
  4. ASPIRIN. [Concomitant]
     Active Substance: ASPIRIN

REACTIONS (4)
  - Dermatitis contact [None]
  - Pityriasis rubra pilaris [None]
  - Allergic reaction to excipient [None]
  - Photosensitivity reaction [None]

NARRATIVE: CASE EVENT DATE: 20180323
